FAERS Safety Report 11044080 (Version 1)
Quarter: 2015Q2

REPORT INFORMATION
  Report Type: Spontaneous
  Country: None (occurrence: None)
  Receive Date: 20150416
  Receipt Date: 20150416
  Transmission Date: 20150821
  Serious: Yes (Hospitalization)
  Sender: FDA-Public Use
  Company Number: None

PATIENT
  Age: 55 Year
  Sex: Female
  Weight: 97.5 kg

DRUGS (18)
  1. CETIRIZINE (ZYRTEC) [Concomitant]
  2. PROPYLENE GLYCOL (SYSTANE BALANCE OPHT) [Concomitant]
  3. VITAMIN C-VITAMIN E (CRANBERRY CONCENTRATE) [Concomitant]
  4. MULTIVITAMIN THERAPEUTIC (THERAGRAN) [Concomitant]
  5. OMEPRAZOLE (PRILOSEC) [Concomitant]
  6. PSEUDOEPHEDRINE (SUDAFED) [Concomitant]
  7. IDELALISIB 150 MG [Suspect]
     Active Substance: IDELALISIB
     Indication: NON-HODGKIN^S LYMPHOMA STAGE IV
     Route: 048
  8. AMITRIPTYLINE (ELAVIL) [Concomitant]
  9. FAMOTIDINE (PEPCID) 2 [Concomitant]
  10. FERROUS SULFATE 325 (65 FE) MO EC TABLET [Concomitant]
  11. ONDANSETRON (ZOFRAN) [Concomitant]
  12. CALCIUM CARBONATE-VITAMIN D3 (CALCIUM 600 WITH VITAMIN 03) [Concomitant]
  13. CALCIUM, AS CARBONATE, (TUMS) [Concomitant]
  14. CHOLECELCIFEROL, VITAMIN D3, (VITAMIN 0) [Concomitant]
  15. CYCLOSPORINE (RESTASIS) [Concomitant]
  16. TYLENOL [Concomitant]
     Active Substance: ACETAMINOPHEN
  17. DICLOFENAC (VOLTAREN) [Concomitant]
  18. DOCOSHEXANOIC ACID-EICOSAPENT 500 MG (FISH OIL) [Concomitant]

REACTIONS (16)
  - Condition aggravated [None]
  - Paraesthesia [None]
  - Hypoxia [None]
  - Hypoaesthesia [None]
  - Pyrexia [None]
  - Computerised tomogram thorax abnormal [None]
  - Vomiting [None]
  - Speech disorder [None]
  - Respiratory disorder [None]
  - Pneumonitis [None]
  - Dyspnoea [None]
  - Cough [None]
  - Chest discomfort [None]
  - Nausea [None]
  - Night sweats [None]
  - Movement disorder [None]

NARRATIVE: CASE EVENT DATE: 20150411
